FAERS Safety Report 9604073 (Version 1)
Quarter: 2013Q4

REPORT INFORMATION
  Report Type: Spontaneous
  Country: GR (occurrence: GR)
  Receive Date: 20131008
  Receipt Date: 20131008
  Transmission Date: 20140711
  Serious: Yes (Other)
  Sender: FDA-Public Use
  Company Number: GR-ROCHE-1284705

PATIENT
  Age: 15 Year
  Sex: Female

DRUGS (2)
  1. CELLCEPT [Suspect]
     Indication: TRANSPLANT
     Dosage: 12 DAYS
     Route: 065
  2. DEPAKIN [Interacting]
     Indication: EPILEPSY
     Route: 065

REACTIONS (6)
  - Dizziness [Unknown]
  - Nausea [Unknown]
  - Vomiting [Unknown]
  - Drug interaction [Unknown]
  - Hyperammonaemic encephalopathy [Unknown]
  - Anticonvulsant drug level increased [Unknown]
